FAERS Safety Report 6926695-6 (Version None)
Quarter: 2010Q3

REPORT INFORMATION
  Report Type: 
  Country: None (occurrence: None)
  Receive Date: 20100816
  Receipt Date: 20100624
  Transmission Date: 20110219
  Serious: No
  Sender: FDA-Public Use
  Company Number: US-ABBOTT-10P-163-0654201-00

PATIENT
  Sex: Female
  Weight: 104.42 kg

DRUGS (7)
  1. SIMCOR [Suspect]
     Indication: BLOOD CHOLESTEROL INCREASED
     Dosage: UNKNOWN DOSE QHS
     Route: 048
     Dates: start: 20100607
  2. ASPIRIN [Concomitant]
     Indication: PROPHYLAXIS
     Route: 048
  3. ADVAIR DISKUS 100/50 [Concomitant]
     Indication: ASTHMA
     Dosage: EVERY MORNING 52/50
  4. VERAPAMIL HCL [Concomitant]
     Indication: ARRHYTHMIA
     Dosage: QHS
  5. LEXAPRO [Concomitant]
     Indication: DEPRESSION
     Route: 048
  6. CYMBALTA [Concomitant]
     Indication: DEPRESSION
  7. MAXALT [Concomitant]
     Indication: MIGRAINE

REACTIONS (2)
  - PRURITUS [None]
  - THROAT IRRITATION [None]
